FAERS Safety Report 6989136-9 (Version None)
Quarter: 2010Q3

REPORT INFORMATION
  Report Type: 
  Country: None (occurrence: None)
  Receive Date: 20100916
  Receipt Date: 20090929
  Transmission Date: 20110219
  Serious: Yes (Other)
  Sender: FDA-Public Use
  Company Number: US-PFIZER INC-2009254546

PATIENT
  Sex: Female

DRUGS (4)
  1. LYRICA [Suspect]
     Indication: FIBROMYALGIA
     Dosage: 75 MG, 1X/DAY
  2. LYRICA [Suspect]
     Indication: NEURALGIA
  3. POTASSIUM CITRATE [Concomitant]
     Indication: NEPHROLITHIASIS
     Dosage: UNK
  4. PROMETHAZINE HYDROCHLORIDE [Concomitant]
     Dosage: UNK

REACTIONS (11)
  - DISTURBANCE IN ATTENTION [None]
  - DIZZINESS [None]
  - DRY MOUTH [None]
  - EAR INFECTION [None]
  - HALLUCINATION, VISUAL [None]
  - HYPERSENSITIVITY [None]
  - MUSCULAR DYSTROPHY [None]
  - OEDEMA PERIPHERAL [None]
  - SOMNOLENCE [None]
  - THINKING ABNORMAL [None]
  - VISUAL ACUITY REDUCED [None]
